FAERS Safety Report 19086351 (Version 1)
Quarter: 2021Q2

REPORT INFORMATION
  Report Type: Spontaneous
  Country: FR (occurrence: FR)
  Receive Date: 20210402
  Receipt Date: 20210402
  Transmission Date: 20210717
  Serious: Yes (Other)
  Sender: FDA-Public Use
  Company Number: FR-TEVA-2021-FR-1895917

PATIENT
  Age: 57 Year
  Sex: Female
  Weight: 77.5 kg

DRUGS (3)
  1. AMIODARONE [Suspect]
     Active Substance: AMIODARONE
     Indication: ATRIAL FIBRILLATION
     Dosage: 1 DOSAGE FORMS
     Route: 048
     Dates: start: 20201113, end: 20210107
  2. HYDROCORTISONE. [Concomitant]
     Active Substance: HYDROCORTISONE
  3. LERCANIDIPINE (CHLORHYDRATE DE) [Suspect]
     Active Substance: LERCANIDIPINE HYDROCHLORIDE
     Indication: HYPERTENSION
     Dosage: 20 MG
     Route: 048
     Dates: start: 20201113, end: 20210107

REACTIONS (1)
  - Diabetes insipidus [Recovered/Resolved]

NARRATIVE: CASE EVENT DATE: 20201203
